FAERS Safety Report 7400899-0 (Version None)
Quarter: 2011Q1

REPORT INFORMATION
  Report Type: 
  Country: None (occurrence: None)
  Receive Date: 20110329
  Receipt Date: 20110315
  Transmission Date: 20110831
  Serious: Yes (Other)
  Sender: FDA-Public Use
  Company Number: 20110214

PATIENT
  Age: 76 Year
  Sex: Female

DRUGS (2)
  1. ADENOSINE INJECTION, USP (6404-10) 3 MG/ML [Suspect]
     Indication: CARDIAC PHARMACOLOGIC STRESS TEST
     Dosage: 140 UG/KG/M IN FOR 6 MINUTES INTRAVENOUS DRIP
     Route: 041
  2. TC 99M SESTAMIBI [Concomitant]

REACTIONS (6)
  - ELECTROCARDIOGRAM ST-T CHANGE [None]
  - ELECTROCARDIOGRAM ST SEGMENT ELEVATION [None]
  - EJECTION FRACTION DECREASED [None]
  - VENTRICULAR HYPOKINESIA [None]
  - ELECTROCARDIOGRAM ST SEGMENT DEPRESSION [None]
  - ELECTROCARDIOGRAM Q WAVE ABNORMAL [None]
